FAERS Safety Report 18459439 (Version 1)
Quarter: 2020Q4

REPORT INFORMATION
  Report Type: Report from Study
  Country: US (occurrence: US)
  Receive Date: 20201103
  Receipt Date: 20201103
  Transmission Date: 20210114
  Serious: Yes (Hospitalization, Other)
  Sender: FDA-Public Use
  Company Number: US-GILEAD-2020-0502144

PATIENT
  Sex: Female

DRUGS (14)
  1. ZYRTEC [Concomitant]
     Active Substance: CETIRIZINE HYDROCHLORIDE
  2. HYPERSAL [Concomitant]
     Active Substance: SODIUM CHLORIDE
  3. FLUOXETINE HYDROCHLORIDE. [Concomitant]
     Active Substance: FLUOXETINE HYDROCHLORIDE
  4. AZTREONAM LYSINE [Suspect]
     Active Substance: AZTREONAM LYSINE
     Indication: CYSTIC FIBROSIS
     Dosage: 75 MG, TID, 28 DAYS ON, 28 DAYS OFF
     Route: 055
  5. DEXMETHYLPHENIDATE HYDROCHLORIDE. [Concomitant]
     Active Substance: DEXMETHYLPHENIDATE HYDROCHLORIDE
  6. ALBUTEROL SULFATE. [Concomitant]
     Active Substance: ALBUTEROL SULFATE
  7. CLARITIN-D NOS [Concomitant]
     Active Substance: LORATADINE\PSEUDOEPHEDRINE SULFATE
  8. QVAR [Concomitant]
     Active Substance: BECLOMETHASONE DIPROPIONATE
  9. TOBI [Concomitant]
     Active Substance: TOBRAMYCIN
  10. AZITHROMYCIN ANHYDROUS. [Concomitant]
     Active Substance: AZITHROMYCIN ANHYDROUS
  11. FLINTSTONES [Concomitant]
  12. FLONASE [Concomitant]
     Active Substance: FLUTICASONE PROPIONATE
  13. PULMOZYME [Concomitant]
     Active Substance: DORNASE ALFA
  14. VITAMIN D [COLECALCIFEROL] [Concomitant]
     Active Substance: CHOLECALCIFEROL

REACTIONS (1)
  - Cystic fibrosis [Unknown]
